FAERS Safety Report 15765274 (Version 1)
Quarter: 2018Q4

REPORT INFORMATION
  Report Type: Spontaneous
  Country: TR (occurrence: TR)
  Receive Date: 20181227
  Receipt Date: 20181227
  Transmission Date: 20190205
  Serious: Yes (Hospitalization, Other)
  Sender: FDA-Public Use
  Company Number: TR-SAKK-2018SA390060AA

PATIENT
  Age: 44 Year
  Sex: Male

DRUGS (4)
  1. ENOXAPARIN SODIUM. [Suspect]
     Active Substance: ENOXAPARIN SODIUM
     Dosage: 0.4 ML
  2. COLCHICINE. [Suspect]
     Active Substance: COLCHICINE
     Dosage: 1 MG, QD
  3. METHYLPREDNISOLONE. [Suspect]
     Active Substance: METHYLPREDNISOLONE
     Indication: VENOUS THROMBOSIS
     Dosage: 4 MG, QD
  4. COUMADIN [Suspect]
     Active Substance: WARFARIN SODIUM
     Indication: DEEP VEIN THROMBOSIS
     Dosage: 5 MG, QD

REACTIONS (10)
  - Haematemesis [Recovered/Resolved]
  - Dyspepsia [Not Recovered/Not Resolved]
  - Haematoma [Recovered/Resolved]
  - Skin laceration [Recovered/Resolved]
  - Melaena [Recovered/Resolved]
  - Dyspnoea [Recovered/Resolved]
  - Dysphagia [Recovered/Resolved]
  - Acute oesophageal mucosal lesion [Recovered/Resolved]
  - Chest pain [Recovered/Resolved]
  - Anaemia [Recovered/Resolved]
